FAERS Safety Report 5921354-0 (Version None)
Quarter: 2008Q4

REPORT INFORMATION
  Report Type: 
  Country: None (occurrence: None)
  Receive Date: 20081014
  Receipt Date: 20081003
  Transmission Date: 20090506
  Serious: Yes (Hospitalization)
  Sender: FDA-Public Use
  Company Number: ENT 2008-0149

PATIENT
  Age: 78 Year
  Sex: Male

DRUGS (8)
  1. ENTACAPONE [Suspect]
     Dosage: ONCE DAILY ORAL, 200MG BD ORAL
     Route: 048
     Dates: start: 20060101, end: 20080101
  2. ENTACAPONE [Suspect]
     Dosage: ONCE DAILY ORAL, 200MG BD ORAL
     Route: 048
     Dates: start: 20080401, end: 20080601
  3. SINEMET [Concomitant]
  4. ASPIRIN [Concomitant]
  5. SIMVASTATIN [Concomitant]
  6. PERSANTIN MR [Concomitant]
  7. GLICLAZIDE [Concomitant]
  8. METFORMIN HYDROCHLORIDE [Concomitant]

REACTIONS (2)
  - ABNORMAL BEHAVIOUR [None]
  - DIARRHOEA [None]
